FAERS Safety Report 13912752 (Version 1)
Quarter: 2017Q3

REPORT INFORMATION
  Report Type: Spontaneous
  Country: US (occurrence: US)
  Receive Date: 20170828
  Receipt Date: 20170828
  Transmission Date: 20171127
  Serious: No
  Sender: FDA-Public Use
  Company Number: US-BAYER-2017-163670

PATIENT
  Age: 4 Year
  Sex: Female

DRUGS (1)
  1. MIRALAX [Suspect]
     Active Substance: POLYETHYLENE GLYCOL 3350
     Dosage: ;NOT AVAIL NOT AVAILABLE
     Route: 065

REACTIONS (4)
  - Product odour abnormal [None]
  - Product taste abnormal [None]
  - Drug administered to patient of inappropriate age [Unknown]
  - Off label use [Unknown]
